FAERS Safety Report 22121431 (Version 2)
Quarter: 2023Q2

REPORT INFORMATION
  Report Type: Report from Study
  Country: CN (occurrence: CN)
  Receive Date: 20230321
  Receipt Date: 20230406
  Transmission Date: 20230721
  Serious: No
  Sender: FDA-Public Use
  Company Number: CN-Taiho-2023Taiho000193

PATIENT
  Age: 60 Year
  Sex: Male
  Weight: 60 kg

DRUGS (9)
  1. TIPIRACIL HYDROCHLORIDE\TRIFLURIDINE [Suspect]
     Active Substance: TIPIRACIL HYDROCHLORIDE\TRIFLURIDINE
     Indication: Rectal cancer
     Dosage: 50 MILLIGRAM, BID (CYCLE 1 DAYS 1-6, BEGINNING DAY 1 EVENING AND ENDING DAY 6 MORNING)
     Route: 048
     Dates: start: 20221206, end: 20221211
  2. TIPIRACIL HYDROCHLORIDE\TRIFLURIDINE [Suspect]
     Active Substance: TIPIRACIL HYDROCHLORIDE\TRIFLURIDINE
     Dosage: 50 MILLIGRAM, BID (CYCLE 1 DAYS 8-13, BEGINNING DAY 8 EVENING AND ENDING DAY 13 MORNING)
     Route: 048
     Dates: start: 20221213, end: 20221218
  3. TIPIRACIL HYDROCHLORIDE\TRIFLURIDINE [Suspect]
     Active Substance: TIPIRACIL HYDROCHLORIDE\TRIFLURIDINE
     Dosage: 50 MILLIGRAM, BID (CYCLE 2 DAYS 1-6, BEGINNING DAY 1 EVENING AND ENDING DAY 6 MORNING)
     Route: 048
     Dates: start: 20230116, end: 20230121
  4. TIPIRACIL HYDROCHLORIDE\TRIFLURIDINE [Suspect]
     Active Substance: TIPIRACIL HYDROCHLORIDE\TRIFLURIDINE
     Dosage: 50 MILLIGRAM, BID (CYCLE 2 DAYS 8-13, BEGINNING DAY 8 EVENING AND ENDING DAY 13 MORNING)
     Route: 048
     Dates: start: 20230123, end: 20230128
  5. TIPIRACIL HYDROCHLORIDE\TRIFLURIDINE [Suspect]
     Active Substance: TIPIRACIL HYDROCHLORIDE\TRIFLURIDINE
     Dosage: 50 MILLIGRAM, BID (CYCLE 3 DAYS 1-5, BEGINNING ON THE MORNING OF DAY 1)
     Route: 048
     Dates: start: 20230214, end: 20230218
  6. TIPIRACIL HYDROCHLORIDE\TRIFLURIDINE [Suspect]
     Active Substance: TIPIRACIL HYDROCHLORIDE\TRIFLURIDINE
     Dosage: 50 MILLIGRAM, BID (CYCLE 3 DAYS 8-12, BEGINNING ON THE MORNING OF DAY 8)
     Route: 048
     Dates: start: 20230221, end: 20230225
  7. TIPIRACIL HYDROCHLORIDE\TRIFLURIDINE [Suspect]
     Active Substance: TIPIRACIL HYDROCHLORIDE\TRIFLURIDINE
     Dosage: 50 MILLIGRAM, BID (CYCLE 4 DAYS 1-5, BEGINNING ON THE MORNING OF DAY 1)
     Route: 048
     Dates: start: 20230315, end: 20230319
  8. TIPIRACIL HYDROCHLORIDE\TRIFLURIDINE [Suspect]
     Active Substance: TIPIRACIL HYDROCHLORIDE\TRIFLURIDINE
     Dosage: 50 MILLIGRAM, BID (CYCLE 4 DAYS 8-12, BEGINNING ON THE MORNING OF DAY 8)
     Route: 048
     Dates: start: 20230322, end: 20230326
  9. BEVACIZUMAB [Suspect]
     Active Substance: BEVACIZUMAB
     Indication: Rectal cancer
     Dosage: 0.3
     Route: 042
     Dates: start: 20221205

REACTIONS (10)
  - Diarrhoea [Recovered/Resolved]
  - White blood cell count decreased [Recovered/Resolved]
  - Neutrophil count decreased [Recovered/Resolved]
  - Alanine aminotransferase increased [Recovered/Resolved]
  - Aspartate aminotransferase increased [Recovered/Resolved]
  - Diarrhoea [Recovered/Resolved]
  - Tumour associated fever [Recovered/Resolved]
  - Platelet count decreased [Recovered/Resolved]
  - Aspartate aminotransferase increased [Not Recovered/Not Resolved]
  - Protein urine present [Not Recovered/Not Resolved]

NARRATIVE: CASE EVENT DATE: 20230116
